FAERS Safety Report 25391638 (Version 4)
Quarter: 2025Q4

REPORT INFORMATION
  Report Type: Spontaneous
  Country: EU (occurrence: EU)
  Receive Date: 20250603
  Receipt Date: 20251106
  Transmission Date: 20260117
  Serious: Yes (Hospitalization)
  Sender: BRISTOL-MYERS SQUIBB COMPANY
  Company Number: EU-ROCHE-10000286499

PATIENT
  Age: 59 Year
  Sex: Female
  Weight: 85 kg

DRUGS (10)
  1. PACLITAXEL [Suspect]
     Active Substance: PACLITAXEL
     Indication: Triple negative breast cancer
     Dosage: TOTAL DOSE : 1200 MG/M2?ON 03-MAR-2025, SHE RECEIVED MOST RECENT DOSE OF NAB-PACLITAXEL PRIOR TO SAE.?LAST DAILY DOSE ADMINISTERED BEFORE SAE ONSET: 190 MG
     Route: 042
     Dates: start: 20241216, end: 20250303
  2. TIRAGOLUMAB [Suspect]
     Active Substance: TIRAGOLUMAB
     Indication: Triple negative breast cancer
     Dosage: ON 22-APR-2025, SHE RECEIVED MOST RECENT DOSE OF TIRAGOLUMAB PRIOR TO SAE.
     Route: 042
     Dates: start: 20241216, end: 20250422
  3. TIRAGOLUMAB [Suspect]
     Active Substance: TIRAGOLUMAB
     Dosage: ON 22-APR-2025, SHE RECEIVED MOST RECENT DOSE OF TIRAGOLUMAB PRIOR TO SAE.
     Route: 042
  4. ATEZOLIZUMAB [Suspect]
     Active Substance: ATEZOLIZUMAB
     Indication: Triple negative breast cancer
     Dosage: ON 22-APR-2025, SHE RECEIVED MOST RECENT DOSE OF ATEZOLIZUMAB PRIOR TO SAE.
     Route: 042
     Dates: start: 20241216, end: 20250422
  5. ATEZOLIZUMAB [Suspect]
     Active Substance: ATEZOLIZUMAB
     Dosage: ON 22-APR-2025, SHE RECEIVED MOST RECENT DOSE OF ATEZOLIZUMAB PRIOR TO SAE.
     Route: 042
  6. CARBOPLATIN [Suspect]
     Active Substance: CARBOPLATIN
     Indication: Triple negative breast cancer
     Dosage: TOTAL DOSE : 2160 MG?ON 03-MAR-2025, SHE RECEIVED MOST RECENT DOSE OF CARBOPLATINE PRIOR TO SAE.
     Route: 042
     Dates: start: 20241216, end: 20250303
  7. DOXORUBICIN [Suspect]
     Active Substance: DOXORUBICIN
     Indication: Triple negative breast cancer
     Dosage: TOTAL DOSE: 180 MILLIGRAM/SQ.METER?ON 22-APR-2025, SHE RECEIVED MOST RECENT DOSE OF DOXORUBICINE PRIOR TO SAE.?LAST DAILY DOSE ADMINISTERED BEFORE SAE ONSET: 112 MG
     Route: 042
     Dates: start: 20250311, end: 20250422
  8. CYCLOPHOSPHAMIDE [Suspect]
     Active Substance: CYCLOPHOSPHAMIDE
     Indication: Triple negative breast cancer
     Dosage: TOTAL DOSE: 1800 MILLIGRAM/SQ.METER?ON 22-APR-2025, SHE RECEIVED MOST RECENT DOSE OF CYCLOPHOSPHAMIDE PRIOR TO SAE.?LAST DAILY DOSE ADMINISTERED BEFORE SAE ONSET: 1120 MG
     Route: 042
     Dates: start: 20250311, end: 20250422
  9. ONDANSETRON [Concomitant]
     Active Substance: ONDANSETRON
     Indication: Nausea
  10. AKYNZEO [Concomitant]
     Indication: Product used for unknown indication

REACTIONS (2)
  - Troponin increased [Recovered/Resolved]
  - Chest pain [Not Recovered/Not Resolved]

NARRATIVE: CASE EVENT DATE: 20250512
